FAERS Safety Report 16244256 (Version 2)
Quarter: 2020Q4

REPORT INFORMATION
  Report Type: Spontaneous
  Country: US (occurrence: US)
  Receive Date: 20190426
  Receipt Date: 20201124
  Transmission Date: 20210113
  Serious: Yes (Hospitalization, Other)
  Sender: FDA-Public Use
  Company Number: US-JNJFOC-20190430699

PATIENT
  Sex: Female

DRUGS (2)
  1. OTEZLA [Suspect]
     Active Substance: APREMILAST
     Indication: PRODUCT USED FOR UNKNOWN INDICATION
     Route: 065
  2. SIMPONI [Suspect]
     Active Substance: GOLIMUMAB
     Indication: PSORIATIC ARTHROPATHY
     Route: 058
     Dates: start: 201211, end: 201612

REACTIONS (8)
  - Headache [Unknown]
  - Radicular pain [Unknown]
  - Spinal operation [Unknown]
  - Colonic abscess [Unknown]
  - Diverticulitis [Unknown]
  - Intervertebral disc operation [Unknown]
  - Bladder disorder [Unknown]
  - Herpes zoster [Unknown]

NARRATIVE: CASE EVENT DATE: 201312
